FAERS Safety Report 10691382 (Version 2)
Quarter: 2015Q1

REPORT INFORMATION
  Report Type: Report from Study
  Country: US (occurrence: US)
  Receive Date: 20150105
  Receipt Date: 20150105
  Transmission Date: 20150720
  Serious: Yes (Other)
  Sender: FDA-Public Use
  Company Number: US-ASTRAZENECA-2011SE30916

PATIENT
  Age: 70 Year
  Sex: Male
  Weight: 76.9 kg

DRUGS (10)
  1. CIALIS [Concomitant]
     Active Substance: TADALAFIL
  2. ZD6474 [Suspect]
     Active Substance: VANDETANIB
     Indication: GLIOBLASTOMA
     Route: 048
     Dates: start: 20110217, end: 20110518
  3. LISINOPRIL. [Concomitant]
     Active Substance: LISINOPRIL
  4. LOVENOX [Concomitant]
     Active Substance: ENOXAPARIN SODIUM
  5. BACTRIM [Concomitant]
     Active Substance: SULFAMETHOXAZOLE\TRIMETHOPRIM
  6. DEXAMETHASON [Concomitant]
     Active Substance: DEXAMETHASONE
  7. MYCOSTATIN MOUTHWASH [Concomitant]
  8. SIROLIMUS. [Suspect]
     Active Substance: SIROLIMUS
     Indication: GLIOBLASTOMA
     Route: 048
     Dates: start: 20110217
  9. IMODIUM [Concomitant]
     Active Substance: LOPERAMIDE HYDROCHLORIDE
  10. ZOFRAN [Concomitant]
     Active Substance: ONDANSETRON HYDROCHLORIDE

REACTIONS (3)
  - Palmar-plantar erythrodysaesthesia syndrome [Unknown]
  - Lymphocyte count decreased [Unknown]
  - Rash pruritic [Not Recovered/Not Resolved]

NARRATIVE: CASE EVENT DATE: 20110518
